FAERS Safety Report 11104202 (Version 1)
Quarter: 2015Q2

REPORT INFORMATION
  Report Type: Spontaneous
  Country: FR (occurrence: None)
  Receive Date: 20150507
  Receipt Date: 20150507
  Transmission Date: 20150821
  Serious: Yes (Hospitalization, Other)
  Sender: FDA-Public Use
  Company Number: 2015COV00090

PATIENT
  Age: 65 Year
  Sex: Male

DRUGS (15)
  1. SALBUTAMOL (SALBUTAMOL SULPHATE) [Concomitant]
  2. DISCOTRINE (NITROGLYCERINE) [Concomitant]
  3. AUGMENTIN [Suspect]
     Active Substance: AMOXICILLIN\CLAVULANATE POTASSIUM
     Indication: LUNG INFECTION
     Dosage: UNK
     Dates: start: 20141224, end: 20150101
  4. KARDEGIC [Concomitant]
     Active Substance: ASPIRIN LYSINE
  5. TEMERIT (NEBIVOLOL) [Concomitant]
  6. DIGOXIN. [Suspect]
     Active Substance: DIGOXIN
     Indication: ATRIAL FIBRILLATION
     Dosage: UNK?
     Dates: start: 201412, end: 20150101
  7. ROCEPHINE (CEFTRIAXONE SODIUM) [Concomitant]
  8. IMOVANE [Concomitant]
     Active Substance: ZOPICLONE
  9. SYMBICORT [Concomitant]
     Active Substance: BUDESONIDE\FORMOTEROL FUMARATE DIHYDRATE
  10. SPIRIVA (TIOTROPIUM BROMIDE) [Concomitant]
  11. CORDARONE [Suspect]
     Active Substance: AMIODARONE HYDROCHLORIDE
     Indication: ATRIAL FIBRILLATION
     Dosage: UNK
     Dates: start: 201412, end: 20150101
  12. VICTOZA [Concomitant]
     Active Substance: LIRAGLUTIDE
  13. TRIATEC (RAMIPRIL) [Concomitant]
     Active Substance: RAMIPRIL
  14. AUGMENTIN [Suspect]
     Active Substance: AMOXICILLIN\CLAVULANATE POTASSIUM
     Indication: SUPERINFECTION
     Dosage: UNK
     Dates: start: 20141224, end: 20150101
  15. LASILIX (FRUSEMIDE) [Concomitant]

REACTIONS (5)
  - Anti factor V antibody positive [None]
  - Anaemia [None]
  - Chronic obstructive pulmonary disease [None]
  - Prothrombin time shortened [None]
  - Haemoglobin decreased [None]

NARRATIVE: CASE EVENT DATE: 20141224
